FAERS Safety Report 22017604 (Version 1)
Quarter: 2023Q1

REPORT INFORMATION
  Report Type: Other
  Country: None (occurrence: CN)
  Receive Date: 20230221
  Receipt Date: 20230221
  Transmission Date: 20230418
  Serious: Yes (Other)
  Sender: FDA-Public Use
  Company Number: CN-B.Braun Medical Inc.-2138260

PATIENT
  Age: 69 Year
  Sex: Male

DRUGS (6)
  1. MANNITOL [Suspect]
     Active Substance: MANNITOL
     Indication: Intraocular pressure test
     Route: 042
  2. METHAZOLAMIDE [Suspect]
     Active Substance: METHAZOLAMIDE
  3. CARTEOLOL HYDROCHLORIDE [Suspect]
     Active Substance: CARTEOLOL HYDROCHLORIDE
  4. BRINZOLAMIDE [Suspect]
     Active Substance: BRINZOLAMIDE
  5. BRIMONIDINE TARTRATE [Suspect]
     Active Substance: BRIMONIDINE TARTRATE
  6. PILOCARPINE NITRATE [Suspect]
     Active Substance: PILOCARPINE NITRATE

REACTIONS (1)
  - Drug ineffective [Unknown]
